FAERS Safety Report 15155951 (Version 1)
Quarter: 2018Q3

REPORT INFORMATION
  Report Type: Spontaneous
  Country: NL (occurrence: NL)
  Receive Date: 20180717
  Receipt Date: 20180717
  Transmission Date: 20181010
  Serious: Yes (Other)
  Sender: FDA-Public Use
  Company Number: NL-US WORLDMEDS, LLC-STA_00020040

PATIENT
  Sex: Female
  Weight: 67 kg

DRUGS (12)
  1. LEVODOPA/CARBIDOPA/ENTACAP 100/25/200MG [Concomitant]
  2. HYDROCORTISON FAGRON FNA CREME 10MG/G 30 G [Concomitant]
     Dosage: TWICE DAILY
  3. FOSAVANCE TABLET 70MG/2800IE [Concomitant]
  4. NEUPRO PLASTER 2MG/24HR [Concomitant]
  5. APOMORPHINE HYDROCHLORIDE [Suspect]
     Active Substance: APOMORPHINE HYDROCHLORIDE
     Indication: PARKINSON^S DISEASE
     Dosage: 0.55, BOLUS 0.15
     Route: 058
     Dates: start: 20160509
  6. ENTACAPONE MYLAN TABLET 200MG [Concomitant]
  7. PANTOPRAZOL PENSA TABLET MSR 40MG [Concomitant]
     Active Substance: PANTOPRAZOLE SODIUM
  8. ZOPICLON TABLET 7,5MG [Concomitant]
  9. KETOCONAZOL AUROBINDO SHAMPOO 20MG/G [Concomitant]
     Dosage: ONCE WEEKLY
  10. SINEMET 62,5 TABLET 50/12,5MG [Concomitant]
  11. SYMMETREL CAPSULE 100MG [Concomitant]
  12. CORBILTA TABLET 50/12,5/200MG [Concomitant]

REACTIONS (3)
  - Movement disorder [Not Recovered/Not Resolved]
  - Fall [Unknown]
  - Hand fracture [Unknown]
